FAERS Safety Report 13562703 (Version 1)
Quarter: 2017Q2

REPORT INFORMATION
  Report Type: Spontaneous
  Country: US (occurrence: US)
  Receive Date: 20170518
  Receipt Date: 20170518
  Transmission Date: 20170830
  Serious: Yes (Death, Other)
  Sender: FDA-Public Use
  Company Number: None

PATIENT
  Age: 74 Year
  Sex: Male

DRUGS (1)
  1. SUTENT [Suspect]
     Active Substance: SUNITINIB MALATE
     Indication: METASTASIS
     Dosage: 1 CAPSULE (50MG) 4 WEEKS ON 2 WEEKS OFF BY MOUTH
     Route: 048
     Dates: start: 20161101, end: 20170414

REACTIONS (2)
  - Malignant neoplasm progression [None]
  - Treatment failure [None]

NARRATIVE: CASE EVENT DATE: 20170430
